FAERS Safety Report 24154877 (Version 1)
Quarter: 2024Q3

REPORT INFORMATION
  Report Type: Spontaneous
  Country: US (occurrence: US)
  Receive Date: 20240731
  Receipt Date: 20240731
  Transmission Date: 20241017
  Serious: No
  Sender: ELI LILLY AND CO
  Company Number: US-ELI_LILLY_AND_COMPANY-US202407018971

PATIENT
  Age: 31 Year
  Sex: Female

DRUGS (16)
  1. ZEPBOUND [Suspect]
     Active Substance: TIRZEPATIDE
     Indication: Glucose tolerance impaired
     Dosage: 2.5 MG, UNKNOWN
     Route: 058
     Dates: start: 202406
  2. ZEPBOUND [Suspect]
     Active Substance: TIRZEPATIDE
     Indication: Glucose tolerance impaired
     Dosage: 2.5 MG, UNKNOWN
     Route: 058
     Dates: start: 202406
  3. ZEPBOUND [Suspect]
     Active Substance: TIRZEPATIDE
     Indication: Glucose tolerance impaired
     Dosage: 2.5 MG, UNKNOWN
     Route: 058
     Dates: start: 202406
  4. ZEPBOUND [Suspect]
     Active Substance: TIRZEPATIDE
     Indication: Glucose tolerance impaired
     Dosage: 2.5 MG, UNKNOWN
     Route: 058
     Dates: start: 202406
  5. ZEPBOUND [Suspect]
     Active Substance: TIRZEPATIDE
     Indication: Polycystic ovarian syndrome
  6. ZEPBOUND [Suspect]
     Active Substance: TIRZEPATIDE
     Indication: Polycystic ovarian syndrome
  7. ZEPBOUND [Suspect]
     Active Substance: TIRZEPATIDE
     Indication: Polycystic ovarian syndrome
  8. ZEPBOUND [Suspect]
     Active Substance: TIRZEPATIDE
     Indication: Polycystic ovarian syndrome
  9. ZEPBOUND [Suspect]
     Active Substance: TIRZEPATIDE
     Indication: Weight control
  10. ZEPBOUND [Suspect]
     Active Substance: TIRZEPATIDE
     Indication: Weight control
  11. ZEPBOUND [Suspect]
     Active Substance: TIRZEPATIDE
     Indication: Weight control
  12. ZEPBOUND [Suspect]
     Active Substance: TIRZEPATIDE
     Indication: Weight control
  13. ZEPBOUND [Suspect]
     Active Substance: TIRZEPATIDE
     Indication: Insulin resistance
  14. ZEPBOUND [Suspect]
     Active Substance: TIRZEPATIDE
     Indication: Insulin resistance
  15. ZEPBOUND [Suspect]
     Active Substance: TIRZEPATIDE
     Indication: Insulin resistance
  16. ZEPBOUND [Suspect]
     Active Substance: TIRZEPATIDE
     Indication: Insulin resistance

REACTIONS (1)
  - Injection site injury [Unknown]
